FAERS Safety Report 7480637-6 (Version None)
Quarter: 2011Q2

REPORT INFORMATION
  Report Type: 
  Country: None (occurrence: None)
  Receive Date: 20110512
  Receipt Date: 20110512
  Transmission Date: 20111010
  Serious: Yes (Hospitalization)
  Sender: FDA-Public Use
  Company Number: None

PATIENT
  Sex: Female
  Weight: 77.1115 kg

DRUGS (1)
  1. CYMBALTA [Suspect]
     Indication: BACK PAIN
     Dosage: 30MG DAILY IN PM PO
     Route: 048
     Dates: start: 20110506, end: 20110507

REACTIONS (5)
  - CHILLS [None]
  - AUTONOMIC NEUROPATHY [None]
  - VISION BLURRED [None]
  - BURNING SENSATION [None]
  - FEELING ABNORMAL [None]
